FAERS Safety Report 9686369 (Version 1)
Quarter: 2013Q4

REPORT INFORMATION
  Report Type: Other
  Country: GB (occurrence: GB)
  Receive Date: 20131113
  Receipt Date: 20131113
  Transmission Date: 20140711
  Serious: Yes (Hospitalization)
  Sender: FDA-Public Use
  Company Number: GB-BRISTOL-MYERS SQUIBB COMPANY-19803535

PATIENT
  Age: 68 Year
  Sex: Male

DRUGS (9)
  1. METFORMIN HCL [Suspect]
     Indication: TYPE 2 DIABETES MELLITUS
  2. AMLODIPINE [Suspect]
  3. INDAPAMIDE [Suspect]
     Indication: HYPERTENSION
  4. LISINOPRIL [Concomitant]
  5. PIOGLITAZONE HCL [Concomitant]
  6. GLICLAZIDE [Concomitant]
  7. SALBUTAMOL [Concomitant]
  8. SERETIDE [Concomitant]
  9. ROSUVASTATIN [Concomitant]

REACTIONS (3)
  - Chronic obstructive pulmonary disease [Unknown]
  - Hypomagnesaemia [Recovered/Resolved]
  - Hypocalcaemia [Recovered/Resolved]
